FAERS Safety Report 23767683 (Version 1)
Quarter: 2024Q2

REPORT INFORMATION
  Report Type: Report from Study
  Country: US (occurrence: US)
  Receive Date: 20240422
  Receipt Date: 20240422
  Transmission Date: 20240716
  Serious: Yes (Other)
  Sender: FDA-Public Use
  Company Number: US-MYLANLABS-2024M1033933

PATIENT
  Sex: Female

DRUGS (2)
  1. LETROZOLE [Suspect]
     Active Substance: LETROZOLE
     Indication: Ovarian granulosa cell tumour
     Dosage: 2.5 MILLIGRAM, QD; FOR ALL 28-DAYS OF THE 28-DAY CYCLE
     Route: 048
  2. PALBOCICLIB [Suspect]
     Active Substance: PALBOCICLIB
     Indication: Ovarian granulosa cell tumour
     Dosage: 125 MILLIGRAM, CYCLE; FOR DAYS 1-21 FOR EACH 28-DAY CYCLE
     Route: 048

REACTIONS (3)
  - Drug ineffective for unapproved indication [Unknown]
  - Disease progression [Unknown]
  - Off label use [Unknown]
